FAERS Safety Report 9805644 (Version 1)
Quarter: 2014Q1

REPORT INFORMATION
  Report Type: Spontaneous
  Country: US (occurrence: None)
  Receive Date: 20140108
  Receipt Date: 20140108
  Transmission Date: 20141002
  Serious: Yes (Hospitalization)
  Sender: FDA-Public Use
  Company Number: None

PATIENT
  Age: 47 Year
  Sex: Female
  Weight: 50.2 kg

DRUGS (10)
  1. CETUXIMAB [Suspect]
     Dates: start: 20130701, end: 20131230
  2. PAZOPANIB [Suspect]
     Dates: start: 20130701, end: 20131230
  3. CLINDAMYCIN PHOSPHATE [Concomitant]
  4. HYDROCODONE-ACETAMINOPHEN [Concomitant]
  5. HYDROCORTISONE [Concomitant]
  6. LIDOCAINE-PRILOCAINE [Concomitant]
  7. LORAZEPAM [Concomitant]
  8. METRONIDAZOLE [Concomitant]
  9. PHOS-NAX [Concomitant]
  10. PEOCHLORPERAZINE MALEATE [Concomitant]

REACTIONS (2)
  - Agitation [None]
  - Anxiety [None]
